FAERS Safety Report 5452139-X (Version None)
Quarter: 2007Q3

REPORT INFORMATION
  Report Type: 
  Country: None (occurrence: None)
  Receive Date: 20070914
  Receipt Date: 20070906
  Transmission Date: 20080115
  Serious: Yes (Other)
  Sender: FDA-Public Use
  Company Number: PHEH2007US12217

PATIENT
  Sex: Female

DRUGS (3)
  1. DIOVAN [Suspect]
     Indication: HYPERTENSION
     Dosage: 80MG, UNK
  2. SPIRONOLACTONE [Suspect]
     Indication: HYPERTENSION
     Dosage: .25MG, UNK
  3. HYDROCHLOROTHIAZIDE [Suspect]
     Indication: HYPERTENSION
     Dosage: 12.5MG, UNK

REACTIONS (2)
  - HERPES ZOSTER [None]
  - NERVE INJURY [None]
